FAERS Safety Report 13974114 (Version 1)
Quarter: 2017Q3

REPORT INFORMATION
  Report Type: Spontaneous
  Country: US (occurrence: US)
  Receive Date: 20170915
  Receipt Date: 20170915
  Transmission Date: 20171128
  Serious: No
  Sender: FDA-Public Use
  Company Number: US-BAUSCH-BL-2017-002647

PATIENT
  Age: 66 Year
  Sex: Male
  Weight: 102.15 kg

DRUGS (5)
  1. EFUDEX [Suspect]
     Active Substance: FLUOROURACIL
     Indication: PRECANCEROUS CELLS PRESENT
     Route: 061
     Dates: start: 20170109, end: 20170125
  2. EXFORGE [Concomitant]
     Active Substance: AMLODIPINE BESYLATE\VALSARTAN
     Indication: HYPERTENSION
     Route: 048
  3. PROTONIX [Concomitant]
     Active Substance: PANTOPRAZOLE SODIUM
     Indication: GASTRIC DISORDER
     Route: 048
  4. METFORMIN [Concomitant]
     Active Substance: METFORMIN HYDROCHLORIDE
     Indication: DIABETES MELLITUS
     Route: 048
  5. CRESTOR [Concomitant]
     Active Substance: ROSUVASTATIN CALCIUM
     Indication: BLOOD CHOLESTEROL INCREASED
     Route: 048

REACTIONS (5)
  - Application site swelling [Recovering/Resolving]
  - Application site exfoliation [Recovering/Resolving]
  - Application site pruritus [Unknown]
  - Scab [Recovering/Resolving]
  - Application site pain [Recovering/Resolving]

NARRATIVE: CASE EVENT DATE: 201701
